FAERS Safety Report 14685754 (Version 1)
Quarter: 2018Q1

REPORT INFORMATION
  Report Type: Report from Study
  Country: US (occurrence: US)
  Receive Date: 20180327
  Receipt Date: 20180327
  Transmission Date: 20180509
  Serious: Yes (Death, Life-Threatening, Other)
  Sender: FDA-Public Use
  Company Number: US-MYLANLABS-2018M1020865

PATIENT
  Age: 50 Year
  Sex: Male

DRUGS (3)
  1. DIPHENHYDRAMINE. [Suspect]
     Active Substance: DIPHENHYDRAMINE
     Indication: PRODUCT USED FOR UNKNOWN INDICATION
     Route: 065
  2. OLANZAPINE. [Suspect]
     Active Substance: OLANZAPINE
     Indication: PRODUCT USED FOR UNKNOWN INDICATION
     Route: 065
  3. LORAZEPAM. [Suspect]
     Active Substance: LORAZEPAM
     Indication: PRODUCT USED FOR UNKNOWN INDICATION
     Route: 065

REACTIONS (10)
  - Coma [Unknown]
  - Depressed level of consciousness [Unknown]
  - Agitation [Unknown]
  - Toxicity to various agents [Fatal]
  - Respiratory depression [Unknown]
  - Rhabdomyolysis [Unknown]
  - Hallucination [Unknown]
  - Electrocardiogram QT prolonged [Unknown]
  - Delirium [Unknown]
  - Anion gap abnormal [Unknown]
